FAERS Safety Report 25765892 (Version 3)
Quarter: 2025Q4

REPORT INFORMATION
  Report Type: Spontaneous
  Country: US (occurrence: US)
  Receive Date: 20250905
  Receipt Date: 20251202
  Transmission Date: 20260118
  Serious: Yes (Other)
  Sender: BAYER HEALTHCARE PHARMACEUTICALS INC.
  Company Number: US-BAYER-2025A115893

PATIENT
  Age: 39 Year
  Sex: Male

DRUGS (11)
  1. KOVALTRY [Suspect]
     Active Substance: ANTIHEMOPHILIC FACTOR, HUMAN RECOMBINANT
     Indication: Factor VIII deficiency
     Dosage: STRENGTH: 500; INFUSED: MINOR BLEED: 3080 UNITS (2772-3388)~ MAJOR BLEED: 3850 UNITS (3465-4235)~ TA
     Route: 042
     Dates: start: 201907
  2. KOVALTRY [Suspect]
     Active Substance: ANTIHEMOPHILIC FACTOR, HUMAN RECOMBINANT
     Indication: Factor VIII deficiency
     Dosage: STRENGTH: 3000; INFUSED: MINOR BLEED: 3080 UNITS (2772-3388)~ MAJOR BLEED: 3850 UNITS (3465-4235)~ T
     Route: 042
     Dates: start: 201907
  3. KOVALTRY [Suspect]
     Active Substance: ANTIHEMOPHILIC FACTOR, HUMAN RECOMBINANT
     Indication: Factor VIII deficiency
     Dosage: STRENGTH: UNK; INFUSED; 3850 IU
     Route: 042
     Dates: start: 20250821
  4. KOVALTRY [Suspect]
     Active Substance: ANTIHEMOPHILIC FACTOR, HUMAN RECOMBINANT
     Indication: Factor VIII deficiency
     Dosage: STRENGTH: UNK; INFUSED; 3080 IU
     Route: 042
     Dates: start: 20250822
  5. KOVALTRY [Suspect]
     Active Substance: ANTIHEMOPHILIC FACTOR, HUMAN RECOMBINANT
     Indication: Factor VIII deficiency
     Dosage: STRENGTH: UNK; INFUSED; 3080 IU
     Route: 042
     Dates: start: 20250824
  6. KOVALTRY [Suspect]
     Active Substance: ANTIHEMOPHILIC FACTOR, HUMAN RECOMBINANT
     Indication: Factor VIII deficiency
     Dosage: STRENGTH:3000 UNITS  INFUSE SLOW IV PUSH: MINOR BLEED: 3080 UNITS (2772-3388), MAJOR BLEED: 3850 UNI
     Route: 042
     Dates: start: 202207
  7. KOVALTRY [Suspect]
     Active Substance: ANTIHEMOPHILIC FACTOR, HUMAN RECOMBINANT
     Indication: Factor VIII deficiency
     Dosage: STRENGTH: UNK; MAJOR DOSE
     Route: 042
     Dates: start: 20250923
  8. KOVALTRY [Suspect]
     Active Substance: ANTIHEMOPHILIC FACTOR, HUMAN RECOMBINANT
     Indication: Factor VIII deficiency
     Dosage: STRENGTH: UNK; MINOR DOSE
     Route: 042
     Dates: start: 20250923
  9. KOVALTRY [Suspect]
     Active Substance: ANTIHEMOPHILIC FACTOR, HUMAN RECOMBINANT
     Indication: Factor VIII deficiency
     Dosage: STRENGTH:2000 UNITS
     Route: 042
     Dates: start: 202207
  10. HEMLIBRA [Concomitant]
     Active Substance: EMICIZUMAB-KXWH
  11. SODIUM CHLORIDE [Concomitant]
     Active Substance: SODIUM CHLORIDE
     Dosage: 10 ML

REACTIONS (5)
  - Haemarthrosis [Recovered/Resolved]
  - Haemarthrosis [Not Recovered/Not Resolved]
  - Contusion [None]
  - Limb injury [None]
  - Arthralgia [Not Recovered/Not Resolved]

NARRATIVE: CASE EVENT DATE: 20250821
